FAERS Safety Report 8421330-2 (Version None)
Quarter: 2012Q2

REPORT INFORMATION
  Report Type: 
  Country: None (occurrence: None)
  Receive Date: 20120608
  Receipt Date: 20120531
  Transmission Date: 20120825
  Serious: Yes (Hospitalization)
  Sender: FDA-Public Use
  Company Number: PHHY2012FR047163

PATIENT
  Sex: Female

DRUGS (8)
  1. LEXOMIL [Concomitant]
     Dosage: 0.25 DF, BID
  2. EXELON [Suspect]
     Dosage: 6 MG IN THE MORNING AND 3 MG IN THE EVENING
     Route: 048
     Dates: start: 20110429
  3. CHONDROSULF [Concomitant]
     Dosage: 1200 MG, UNK
     Route: 048
  4. EXELON [Suspect]
     Dosage: 1.5 MG, BID
     Route: 048
  5. FLECTOR [Concomitant]
  6. ESCITALOPRAM [Concomitant]
     Dosage: 1 DF, QD
     Route: 048
  7. TIORFAN [Concomitant]
     Dosage: 3 DF, UNK
  8. ACETAMINOPHEN [Concomitant]
     Dosage: 6 DF, UNK
     Route: 048

REACTIONS (5)
  - DIARRHOEA [None]
  - DEHYDRATION [None]
  - OXYGEN SATURATION ABNORMAL [None]
  - VOMITING [None]
  - PNEUMONIA ASPIRATION [None]
